FAERS Safety Report 8566116-3 (Version None)
Quarter: 2012Q3

REPORT INFORMATION
  Report Type: 
  Country: None (occurrence: None)
  Receive Date: 20120803
  Receipt Date: 20111004
  Transmission Date: 20120928
  Serious: No
  Sender: FDA-Public Use
  Company Number: US-ABBOTT-11P-163-0845462-00

PATIENT
  Sex: Female
  Weight: 116.22 kg

DRUGS (2)
  1. NIASPAN [Suspect]
     Indication: HIGH DENSITY LIPOPROTEIN DECREASED
  2. NIASPAN [Suspect]
     Indication: HYPERLIPIDAEMIA

REACTIONS (5)
  - HYPERSENSITIVITY [None]
  - SWELLING FACE [None]
  - DYSPNOEA [None]
  - ILL-DEFINED DISORDER [None]
  - EYE SWELLING [None]
